FAERS Safety Report 4990155-2 (Version None)
Quarter: 2006Q2

REPORT INFORMATION
  Report Type: 
  Country: None (occurrence: None)
  Receive Date: 20060503
  Receipt Date: 20051019
  Transmission Date: 20061013
  Serious: Yes (Hospitalization)
  Sender: FDA-Public Use
  Company Number: US-MERCK-0510USA08115

PATIENT
  Age: 56 Year
  Sex: Female
  Weight: 85 kg

DRUGS (21)
  1. SINGULAIR [Concomitant]
     Indication: ASTHMA
     Route: 065
  2. FAMOTIDINE [Concomitant]
     Indication: GALLBLADDER DISORDER
     Route: 065
  3. ESTRADIOL [Concomitant]
     Indication: HOT FLUSH
     Route: 065
     Dates: start: 20000101
  4. ALBUTEROL [Concomitant]
     Indication: ASTHMA
     Route: 065
  5. ASPIRIN [Concomitant]
     Route: 065
     Dates: start: 20041101
  6. ZESTRIL [Concomitant]
     Route: 065
     Dates: start: 19850101
  7. FLONASE [Concomitant]
     Indication: SINUS DISORDER
     Route: 065
  8. LASIX [Concomitant]
     Route: 065
     Dates: start: 19850101
  9. DURATUSS [Concomitant]
     Indication: SINUS DISORDER
     Route: 065
  10. ALPRAZOLAM [Concomitant]
     Route: 065
     Dates: start: 19850101
  11. HYDROCHLOROTHIAZIDE [Concomitant]
     Indication: BLOOD PRESSURE
     Route: 065
  12. GLIPIZIDE [Concomitant]
     Indication: DIABETES MELLITUS
     Route: 065
  13. ZOCOR [Concomitant]
     Indication: BLOOD CHOLESTEROL
     Route: 065
     Dates: start: 20041101
  14. VIOXX [Suspect]
     Indication: ARTHRITIS
     Route: 048
     Dates: start: 20040501, end: 20040901
  15. VIOXX [Suspect]
     Indication: ARTHRALGIA
     Route: 048
     Dates: start: 20040501, end: 20040901
  16. XANAX [Concomitant]
     Indication: BLOOD PRESSURE
     Route: 065
     Dates: start: 19850101
  17. GUAIFENESIN AND PSEUDOEPHEDRINE HYDROCHLORIDE [Concomitant]
     Indication: SINUS DISORDER
     Route: 048
  18. FLEXERIL [Concomitant]
     Indication: MUSCLE SPASMS
     Route: 048
  19. DIOVAN [Concomitant]
     Indication: HYPERTENSION
     Route: 065
     Dates: start: 19850101
  20. KLOR-CON [Concomitant]
     Route: 048
  21. METFORMIN HYDROCHLORIDE [Concomitant]
     Indication: DIABETES MELLITUS
     Route: 065
     Dates: start: 20020101

REACTIONS (2)
  - HAEMATOMA [None]
  - MYOCARDIAL INFARCTION [None]
